FAERS Safety Report 7234085-4 (Version None)
Quarter: 2011Q1

REPORT INFORMATION
  Report Type: 
  Country: None (occurrence: None)
  Receive Date: 20110113
  Receipt Date: 20110113
  Transmission Date: 20110831
  Serious: Yes (Life-Threatening, Hospitalization, Other)
  Sender: FDA-Public Use
  Company Number: None

PATIENT
  Age: 50 Year
  Sex: Male
  Weight: 109.7705 kg

DRUGS (2)
  1. LEVAQUIN [Suspect]
     Indication: POLYPECTOMY
     Dosage: 5 1/DAILY PO
     Route: 048
     Dates: start: 20101227, end: 20110102
  2. LEVAQUIN [Suspect]
     Indication: POSTOPERATIVE CARE
     Dosage: 5 1/DAILY PO
     Route: 048
     Dates: start: 20101227, end: 20110102

REACTIONS (1)
  - CEREBROVASCULAR ACCIDENT [None]
